FAERS Safety Report 10475866 (Version 1)
Quarter: 2014Q3

REPORT INFORMATION
  Report Type: Spontaneous
  Country: US (occurrence: None)
  Receive Date: 20140923
  Receipt Date: 20140923
  Transmission Date: 20150326
  Serious: Yes (Other)
  Sender: FDA-Public Use
  Company Number: 2014COV00121

PATIENT
  Age: 55 Year
  Sex: Female

DRUGS (9)
  1. PERCOCET (OXYCODONE HYDROCHLORIDE/PARACETAMOL) [Concomitant]
  2. VITAMIN B [Concomitant]
     Active Substance: VITAMIN B
  3. ASPIRIN (ACETYLSALICYLIC ACID) [Concomitant]
     Active Substance: ASPIRIN
  4. XELJANZ (TOFACITINIB CITRATE) [Concomitant]
     Active Substance: TOFACITINIB
  5. AMOXICILLIN. [Concomitant]
     Active Substance: AMOXICILLIN
  6. PLAQUENIL [Suspect]
     Active Substance: HYDROXYCHLOROQUINE SULFATE
     Route: 048
     Dates: start: 201209
  7. VITAMIN D )ERGOCALCIFEROL) [Concomitant]
  8. FOLIC AICD [Concomitant]
  9. CELEBREX [Concomitant]
     Active Substance: CELECOXIB

REACTIONS (2)
  - Rheumatoid arthritis [None]
  - Osteopenia [None]
